FAERS Safety Report 16412942 (Version 3)
Quarter: 2019Q3

REPORT INFORMATION
  Report Type: Spontaneous
  Country: DE (occurrence: DE)
  Receive Date: 20190611
  Receipt Date: 20190706
  Transmission Date: 20191004
  Serious: Yes (Life-Threatening, Hospitalization, Other)
  Sender: FDA-Public Use
  Company Number: DE-AUROBINDO-AUR-APL-2019-031554

PATIENT

DRUGS (12)
  1. RAMIPRIL. [Suspect]
     Active Substance: RAMIPRIL
     Dosage: 5 MILLIGRAM, ONCE A DAY
     Route: 065
  2. RAMIPRIL. [Suspect]
     Active Substance: RAMIPRIL
     Indication: HYPERTENSION
     Dosage: UNK, DOUBLING OF THE RAMIPRIL DOSE (ANTIHYPERTENSIVE THERAPY REGIMEN WAS INTENSIFIED)
     Route: 065
  3. AMLODIPINE [Suspect]
     Active Substance: AMLODIPINE BESYLATE
     Indication: HYPERTENSION
     Dosage: UNK, ADEQUATE DOSAGES
     Route: 065
  4. AMLODIPINE [Suspect]
     Active Substance: AMLODIPINE BESYLATE
     Dosage: UNK, ANTIHYPERTENSIVE THERAPY REGIMEN WAS INTENSIFIED
     Route: 065
  5. CATAPRESAN [Suspect]
     Active Substance: CLONIDINE
     Indication: HYPERTENSION
     Dosage: UNK, ADEQUATE DOSAGES
     Route: 048
  6. HYDROCHLOROTHIAZIDE. [Suspect]
     Active Substance: HYDROCHLOROTHIAZIDE
     Indication: HYPERTENSION
     Dosage: UNK, ANTIHYPERTENSIVE THERAPY REGIMEN WAS INTENSIFIED
     Route: 065
  7. HYDROCHLOROTHIAZIDE. [Suspect]
     Active Substance: HYDROCHLOROTHIAZIDE
     Dosage: UNK, ADEQUATE DOSAGES
     Route: 065
  8. RAMIPRIL. [Suspect]
     Active Substance: RAMIPRIL
     Dosage: UNK, ADEQUATE DOSAGES
     Route: 065
  9. CARVEDILOL FILM-COATED TABLETS [Suspect]
     Active Substance: CARVEDILOL
     Indication: HYPERTENSION
     Dosage: UNK, ANTIHYPERTENSIVE THERAPY REGIMEN WAS INTENSIFIED
     Route: 065
  10. CARVEDILOL FILM-COATED TABLETS [Suspect]
     Active Substance: CARVEDILOL
     Dosage: UNK, ADEQUATE DOSAGES
     Route: 065
  11. CATAPRESAN [Suspect]
     Active Substance: CLONIDINE
     Dosage: 0.25 MILLIGRAM, ONCE A DAY
     Route: 048
  12. CATAPRESAN [Suspect]
     Active Substance: CLONIDINE
     Dosage: UNK, ANTIHYPERTENSIVE THERAPY REGIMEN WAS INTENSIFIED
     Route: 065

REACTIONS (9)
  - IgA nephropathy [Unknown]
  - Renal artery stenosis [Unknown]
  - Blood pressure inadequately controlled [Recovering/Resolving]
  - Neuropathy peripheral [Unknown]
  - Nephrotic syndrome [Recovering/Resolving]
  - Generalised oedema [Unknown]
  - Condition aggravated [Recovering/Resolving]
  - Proteinuria [Recovering/Resolving]
  - Renal impairment [Recovering/Resolving]
